FAERS Safety Report 24984653 (Version 1)
Quarter: 2025Q1

REPORT INFORMATION
  Report Type: Spontaneous
  Country: SE (occurrence: SE)
  Receive Date: 20250219
  Receipt Date: 20250219
  Transmission Date: 20250409
  Serious: Yes (Other)
  Sender: ASTELLAS
  Company Number: None

PATIENT
  Age: 77 Year
  Sex: Female

DRUGS (1)
  1. MIRABEGRON [Suspect]
     Active Substance: MIRABEGRON
     Indication: Nocturia
     Route: 065
     Dates: start: 20240821, end: 20240825

REACTIONS (3)
  - Cardiac discomfort [Unknown]
  - Dyspnoea exertional [Unknown]
  - Left ventricular failure [Unknown]

NARRATIVE: CASE EVENT DATE: 20240821
